FAERS Safety Report 5643879-8 (Version None)
Quarter: 2008Q1

REPORT INFORMATION
  Report Type: 
  Country: None (occurrence: None)
  Receive Date: 20080226
  Receipt Date: 20080213
  Transmission Date: 20080703
  Serious: Yes (Hospitalization)
  Sender: FDA-Public Use
  Company Number: MEDI-0006559

PATIENT
  Age: 11 Month
  Sex: Male

DRUGS (1)
  1. SYNAGIS [Suspect]
     Dates: end: 20080129

REACTIONS (2)
  - LETHARGY [None]
  - RESPIRATORY SYNCYTIAL VIRUS INFECTION [None]
